FAERS Safety Report 12587007 (Version 1)
Quarter: 2016Q3

REPORT INFORMATION
  Report Type: Spontaneous
  Country: US (occurrence: None)
  Receive Date: 20160722
  Receipt Date: 20160722
  Transmission Date: 20161109
  Serious: Yes (Hospitalization)
  Sender: FDA-Public Use
  Company Number: None

PATIENT
  Age: 28 Year
  Sex: Male

DRUGS (1)
  1. VENLAFAXINE HCL [Suspect]
     Active Substance: VENLAFAXINE HYDROCHLORIDE
     Indication: MAJOR DEPRESSION
     Dosage: 150 MG, PO QAM
     Route: 048
     Dates: start: 20130502, end: 20130521

REACTIONS (6)
  - Drug ineffective [None]
  - Feeling abnormal [None]
  - Anger [None]
  - Depression [None]
  - Product substitution issue [None]
  - Drug effect incomplete [None]
